FAERS Safety Report 4865018-3 (Version None)
Quarter: 2005Q4

REPORT INFORMATION
  Report Type: 
  Country: None (occurrence: None)
  Receive Date: 20051223
  Receipt Date: 20051213
  Transmission Date: 20060501
  Serious: Yes (Other)
  Sender: FDA-Public Use
  Company Number: PHBS2005BR18625

PATIENT
  Age: 57 Year
  Sex: Female
  Weight: 76 kg

DRUGS (2)
  1. CATAFLAM [Suspect]
     Indication: ANTIINFLAMMATORY THERAPY
     Dosage: 50 MG/DAY
     Route: 048
     Dates: start: 20051212, end: 20051212
  2. SERTRALINE HYDROCHLORIDE [Concomitant]
     Indication: DEPRESSION
     Dosage: 0.5 TAB/DAY
     Route: 048
     Dates: start: 20051001

REACTIONS (8)
  - BURNING SENSATION [None]
  - DYSPNOEA [None]
  - GENITAL PRURITUS FEMALE [None]
  - HEART RATE INCREASED [None]
  - PRURITUS [None]
  - RETCHING [None]
  - THROAT IRRITATION [None]
  - THROAT TIGHTNESS [None]
